FAERS Safety Report 9358061 (Version 2)
Quarter: 2013Q3

REPORT INFORMATION
  Report Type: Spontaneous
  Country: US (occurrence: US)
  Receive Date: 20130620
  Receipt Date: 20130731
  Transmission Date: 20140515
  Serious: Yes (Hospitalization)
  Sender: FDA-Public Use
  Company Number: US-PFIZER INC-2013184695

PATIENT
  Age: 52 Year
  Sex: Male
  Weight: 97.51 kg

DRUGS (2)
  1. CHANTIX [Suspect]
     Indication: SMOKING CESSATION THERAPY
     Dosage: UNK
     Dates: start: 201211
  2. VIAGRA [Suspect]
     Indication: ERECTILE DYSFUNCTION
     Dosage: 100 MG, COUPLE OF TIMES IN A WEEK
     Dates: start: 201211

REACTIONS (2)
  - Nervous system disorder [Unknown]
  - Intervertebral disc degeneration [Unknown]
